FAERS Safety Report 5777355-9 (Version None)
Quarter: 2008Q2

REPORT INFORMATION
  Report Type: 
  Country: None (occurrence: None)
  Receive Date: 20080618
  Receipt Date: 20080611
  Transmission Date: 20081010
  Serious: Yes (Life-Threatening)
  Sender: FDA-Public Use
  Company Number: PHHY2008DE10424

PATIENT

DRUGS (10)
  1. GLIVEC [Suspect]
     Indication: ACUTE LYMPHOCYTIC LEUKAEMIA
     Dosage: 400 MG DAILY
     Route: 048
     Dates: start: 20071101, end: 20080301
  2. PANTOPRAZOLE SODIUM [Concomitant]
     Dosage: 20 MG DAILY
  3. L-THYROXIN ^HENNING BERLIN^ [Concomitant]
     Dosage: 100 UG DAILY
  4. BISOPROLOL FUMARATE [Concomitant]
     Dosage: 5 MG DAILY
  5. DELIX PLUS [Concomitant]
     Dosage: 2.5 MG DAILY
  6. DECORTIN [Concomitant]
     Dosage: 20 MG DAILY
  7. TOREM [Concomitant]
     Dosage: 2.5 MG DAILY
  8. TRANSFUSIONS [Concomitant]
     Dosage: UNK
  9. VINCRISTINE [Concomitant]
  10. DEXAMETHASONE TAB [Concomitant]

REACTIONS (15)
  - BLOOD LACTATE DEHYDROGENASE INCREASED [None]
  - BLOOD TEST ABNORMAL [None]
  - BONE MARROW FAILURE [None]
  - C-REACTIVE PROTEIN INCREASED [None]
  - CONJUNCTIVITIS [None]
  - DERMATITIS EXFOLIATIVE [None]
  - HAEMATOCRIT DECREASED [None]
  - HAEMOGLOBIN DECREASED [None]
  - OEDEMA PERIPHERAL [None]
  - PLEURAL EFFUSION [None]
  - PYREXIA [None]
  - RED BLOOD CELL COUNT DECREASED [None]
  - RIGHT VENTRICULAR FAILURE [None]
  - SKIN EXFOLIATION [None]
  - WHITE BLOOD CELL COUNT DECREASED [None]
